FAERS Safety Report 24284125 (Version 2)
Quarter: 2024Q4

REPORT INFORMATION
  Report Type: Report from Study
  Country: US (occurrence: US)
  Receive Date: 20240905
  Receipt Date: 20241025
  Transmission Date: 20250115
  Serious: Yes (Hospitalization, Other)
  Sender: AMGEN
  Company Number: US-AMGEN-USASP2024174094

PATIENT
  Age: 80 Year
  Sex: Female

DRUGS (2)
  1. IMDELLTRA [Suspect]
     Active Substance: TARLATAMAB-DLLE
     Indication: Small cell lung cancer
     Dosage: UNK, Q2WK
     Route: 065
     Dates: start: 20240724
  2. ORSERDU [Concomitant]
     Active Substance: ELACESTRANT
     Indication: Breast cancer metastatic
     Dosage: UNK
     Route: 065
     Dates: start: 20240820

REACTIONS (11)
  - Pyrexia [Unknown]
  - Mental impairment [Unknown]
  - Central nervous system lesion [Unknown]
  - Cerebral disorder [Recovered/Resolved]
  - Visual impairment [Not Recovered/Not Resolved]
  - Headache [Unknown]
  - Amnesia [Unknown]
  - Muscle spasms [Unknown]
  - Speech disorder [Recovered/Resolved]
  - Vertigo [Unknown]
  - Blood bilirubin increased [Unknown]

NARRATIVE: CASE EVENT DATE: 20240101
